FAERS Safety Report 5500513-5 (Version None)
Quarter: 2007Q4

REPORT INFORMATION
  Report Type: 
  Country: None (occurrence: None)
  Receive Date: 20071029
  Receipt Date: 20071015
  Transmission Date: 20080405
  Serious: Yes (Death, Other)
  Sender: FDA-Public Use
  Company Number: GB-AMGEN-US249770

PATIENT
  Age: 76 Year
  Sex: Female
  Weight: 89.2 kg

DRUGS (9)
  1. ENBREL [Suspect]
     Indication: RHEUMATOID ARTHRITIS
     Dosage: 50MG, FREQUENCY NOT STATED
     Route: 058
     Dates: start: 20041101
  2. LEFLUNOMIDE [Concomitant]
     Indication: RHEUMATOID ARTHRITIS
     Dosage: 10MG, FREQUENCY NOT STATED
     Route: 048
     Dates: start: 20000101
  3. LISINOPRIL [Concomitant]
     Dosage: UNKNOWN
     Route: 065
  4. WARFARIN SODIUM [Concomitant]
     Dosage: UNKNOWN
     Route: 065
  5. SIMVASTATIN [Concomitant]
     Dosage: UNKNOWN
     Route: 065
  6. SPIRONOLACTONE [Concomitant]
     Dosage: UNKNOWN
     Route: 065
  7. TRAMADOL HCL [Concomitant]
     Dosage: UNKNOWN
     Route: 065
  8. BUMETANIDE [Concomitant]
     Dosage: UNKNOWN
     Route: 065
  9. PREDNISOLONE [Concomitant]
     Indication: RHEUMATOID ARTHRITIS
     Dosage: 7MG, FREQUENCY NOT STATED
     Route: 048
     Dates: start: 20000101

REACTIONS (3)
  - CARDIAC FAILURE [None]
  - DYSPNOEA [None]
  - PULMONARY OEDEMA [None]
